FAERS Safety Report 13078682 (Version 2)
Quarter: 2017Q1

REPORT INFORMATION
  Report Type: Report from Study
  Country: US (occurrence: US)
  Receive Date: 20170102
  Receipt Date: 20170105
  Transmission Date: 20170428
  Serious: Yes (Other)
  Sender: FDA-Public Use
  Company Number: US-AMGEN-USASL2016183764

PATIENT
  Age: 80 Year
  Sex: Female

DRUGS (1)
  1. REPATHA [Suspect]
     Active Substance: EVOLOCUMAB
     Indication: BLOOD CHOLESTEROL INCREASED
     Dosage: 140 MG, Q2WK
     Route: 065
     Dates: end: 2016

REACTIONS (6)
  - Cognitive disorder [Recovering/Resolving]
  - Gastrooesophageal reflux disease [Unknown]
  - Confusional state [Recovering/Resolving]
  - Road traffic accident [Unknown]
  - Sleep disorder due to a general medical condition [Unknown]
  - Mental impairment [Recovering/Resolving]
